FAERS Safety Report 25484408 (Version 1)
Quarter: 2025Q2

REPORT INFORMATION
  Report Type: Spontaneous
  Country: CH (occurrence: CH)
  Receive Date: 20250626
  Receipt Date: 20250626
  Transmission Date: 20250716
  Serious: Yes (Hospitalization, Other)
  Sender: PFIZER
  Company Number: None

PATIENT
  Age: 60 Year
  Sex: Male

DRUGS (27)
  1. SOLU-MEDROL [Suspect]
     Active Substance: METHYLPREDNISOLONE SODIUM SUCCINATE
     Route: 042
     Dates: start: 20250521, end: 20250523
  2. PROGRAF [Suspect]
     Active Substance: TACROLIMUS
     Route: 048
  3. CELLCEPT [Suspect]
     Active Substance: MYCOPHENOLATE MOFETIL
     Route: 048
     Dates: start: 20250507, end: 20250528
  4. PREDNISONE [Suspect]
     Active Substance: PREDNISONE
     Route: 048
     Dates: end: 202505
  5. ASPIRIN [Concomitant]
     Active Substance: ASPIRIN
     Route: 048
  6. MIDODRINE HYDROCHLORIDE [Concomitant]
     Active Substance: MIDODRINE HYDROCHLORIDE
     Dates: start: 20250518, end: 20250520
  7. CHOLECALCIFEROL [Concomitant]
     Active Substance: CHOLECALCIFEROL
     Route: 048
  8. PALLADONE [Concomitant]
     Active Substance: HYDROMORPHONE HYDROCHLORIDE
     Route: 048
  9. PANTOZOL [Concomitant]
     Active Substance: PANTOPRAZOLE SODIUM
     Route: 048
  10. PIPERACILLIN SODIUM\TAZOBACTAM SODIUM [Concomitant]
     Active Substance: PIPERACILLIN SODIUM\TAZOBACTAM SODIUM
     Dates: end: 20250526
  11. URSODIOL [Concomitant]
     Active Substance: URSODIOL
     Route: 048
  12. HEPARIN [Concomitant]
     Active Substance: HEPARIN SODIUM
  13. SOLU-CORTEF [Concomitant]
     Active Substance: HYDROCORTISONE SODIUM SUCCINATE
     Route: 042
  14. NOREPINEPHRINE BITARTRATE [Concomitant]
     Active Substance: NOREPINEPHRINE BITARTRATE
     Route: 042
  15. ZYPREXA [Concomitant]
     Active Substance: OLANZAPINE
     Route: 048
  16. PROPOFOL LIPURO [Concomitant]
     Active Substance: PROPOFOL
     Route: 042
  17. AMPHOTERICIN B [Concomitant]
     Active Substance: AMPHOTERICIN B
     Route: 002
  18. BACTRIM [Concomitant]
     Active Substance: SULFAMETHOXAZOLE\TRIMETHOPRIM
     Route: 048
  19. THIAMINE HYDROCHLORIDE [Concomitant]
     Active Substance: THIAMINE HYDROCHLORIDE
     Route: 048
  20. NEUROBION [Concomitant]
     Active Substance: CYANOCOBALAMIN\PYRIDOXINE\THIAMINE
     Route: 048
  21. ONDANSETRON [Concomitant]
     Active Substance: ONDANSETRON
     Dates: start: 20250523, end: 20250523
  22. PREGABALIN [Concomitant]
     Active Substance: PREGABALIN
     Route: 048
  23. FLORINEF ACETATE [Concomitant]
     Active Substance: FLUDROCORTISONE ACETATE
     Route: 048
  24. SUPRADYN PRO ENERGY COMPLEX [Concomitant]
     Route: 048
  25. Empressin [Concomitant]
     Route: 042
     Dates: start: 20250526
  26. FOLIC ACID [Concomitant]
     Active Substance: FOLIC ACID
     Route: 048
  27. VALTREX [Concomitant]
     Active Substance: VALACYCLOVIR HYDROCHLORIDE
     Dates: start: 20250522, end: 20250524

REACTIONS (4)
  - Septic shock [Recovered/Resolved]
  - Systemic candida [Unknown]
  - Pneumatosis intestinalis [Recovered/Resolved]
  - Ascites [Unknown]

NARRATIVE: CASE EVENT DATE: 20250526
